FAERS Safety Report 9656231 (Version 1)
Quarter: 2013Q4

REPORT INFORMATION
  Report Type: Spontaneous
  Country: US (occurrence: US)
  Receive Date: 20131030
  Receipt Date: 20131030
  Transmission Date: 20140711
  Serious: Yes (Other)
  Sender: FDA-Public Use
  Company Number: US-ROCHE-1295866

PATIENT
  Age: 67 Year
  Sex: Female

DRUGS (5)
  1. BONIVA [Suspect]
     Indication: OSTEOPENIA
     Route: 065
     Dates: start: 20070419, end: 201003
  2. BONIVA [Suspect]
     Route: 065
     Dates: start: 20091214
  3. FOSAMAX [Suspect]
     Indication: OSTEOPENIA
     Route: 065
     Dates: start: 20090526
  4. FOSAMAX [Suspect]
     Route: 065
     Dates: start: 20090620
  5. FOSAMAX [Suspect]
     Route: 065
     Dates: end: 201003

REACTIONS (2)
  - Ankle fracture [Unknown]
  - Femur fracture [Unknown]
